FAERS Safety Report 9674668 (Version 1)
Quarter: 2013Q4

REPORT INFORMATION
  Report Type: Spontaneous
  Country: US (occurrence: None)
  Receive Date: 20131106
  Receipt Date: 20131106
  Transmission Date: 20140711
  Serious: No
  Sender: FDA-Public Use
  Company Number: None

PATIENT
  Age: 44 Year
  Sex: Female
  Weight: 50.8 kg

DRUGS (1)
  1. LEVAQUIN [Suspect]
     Indication: UPPER RESPIRATORY TRACT INFECTION
     Dosage: TWICE DAILY TAKEN BY MOUTH

REACTIONS (5)
  - Anxiety [None]
  - Tendonitis [None]
  - Carpal tunnel syndrome [None]
  - Abasia [None]
  - Activities of daily living impaired [None]
